FAERS Safety Report 19903744 (Version 3)
Quarter: 2021Q4

REPORT INFORMATION
  Report Type: Spontaneous
  Country: JP (occurrence: JP)
  Receive Date: 20211001
  Receipt Date: 20211210
  Transmission Date: 20220303
  Serious: Yes (Death)
  Sender: FDA-Public Use
  Company Number: JP-EISAI-202106615_LEN-HCC_P_1

PATIENT
  Age: 76 Year
  Sex: Male
  Weight: 57 kg

DRUGS (4)
  1. LENVIMA [Suspect]
     Active Substance: LENVATINIB
     Indication: Hepatocellular carcinoma
     Route: 048
     Dates: start: 20210420, end: 20210528
  2. LENVIMA [Suspect]
     Active Substance: LENVATINIB
     Route: 048
     Dates: start: 20210529, end: 20210716
  3. LENVIMA [Suspect]
     Active Substance: LENVATINIB
     Dosage: 4 MG AND 8 MG ON ALTERNATE DAYS
     Route: 048
     Dates: start: 20210817, end: 20210820
  4. LENVIMA [Suspect]
     Active Substance: LENVATINIB
     Route: 048
     Dates: start: 20210821, end: 20210831

REACTIONS (1)
  - Mesenteric vein thrombosis [Fatal]

NARRATIVE: CASE EVENT DATE: 20210901
